FAERS Safety Report 15706360 (Version 1)
Quarter: 2018Q4

REPORT INFORMATION
  Report Type: Spontaneous
  Country: DE (occurrence: DE)
  Receive Date: 20181210
  Receipt Date: 20181210
  Transmission Date: 20190205
  Serious: Yes (Hospitalization, Other)
  Sender: FDA-Public Use
  Company Number: DE-B.I. PHARMACEUTICALS,INC./RIDGEFIELD-2018-BI-054535

PATIENT
  Age: 70 Year
  Sex: Male
  Weight: 109 kg

DRUGS (3)
  1. METFORMIN [Concomitant]
     Active Substance: METFORMIN HYDROCHLORIDE
     Indication: TYPE 2 DIABETES MELLITUS
     Dosage: STRENGTH: 1000
     Route: 065
     Dates: start: 20171013
  2. XELEVIA [Concomitant]
     Active Substance: SITAGLIPTIN PHOSPHATE
     Indication: TYPE 2 DIABETES MELLITUS
     Dosage: STRENGTH: 100
     Route: 065
     Dates: start: 20170807
  3. JARDIANCE [Suspect]
     Active Substance: EMPAGLIFLOZIN
     Indication: TYPE 2 DIABETES MELLITUS
     Route: 048
     Dates: start: 20180419, end: 201808

REACTIONS (22)
  - Leukocytosis [Unknown]
  - Glycosuria [Unknown]
  - Urinary tract infection [Unknown]
  - Chronic kidney disease [Unknown]
  - Leukocyturia [Unknown]
  - Bladder diverticulum [Unknown]
  - Type 2 diabetes mellitus [Unknown]
  - Haematuria [Unknown]
  - Asthenia [Unknown]
  - Respiratory failure [Unknown]
  - Tachycardia [Unknown]
  - Tachypnoea [Unknown]
  - Hepatomegaly [Unknown]
  - Urosepsis [Unknown]
  - Dysuria [Unknown]
  - Hepatic steatosis [Unknown]
  - Lipomatosis [Unknown]
  - Cardiac failure [Unknown]
  - Renal cyst [Unknown]
  - Pyrexia [Recovered/Resolved]
  - Feeling abnormal [Unknown]
  - Right ventricular failure [Unknown]
